FAERS Safety Report 8095593-X (Version None)
Quarter: 2012Q1

REPORT INFORMATION
  Report Type: 
  Country: None (occurrence: None)
  Receive Date: 20120129
  Receipt Date: 20111227
  Transmission Date: 20120608
  Serious: No
  Sender: FDA-Public Use
  Company Number: US-ABBOTT-11P-163-0887161-00

PATIENT
  Age: 28 Year
  Sex: Female

DRUGS (7)
  1. BENADRYL [Concomitant]
     Indication: PROPHYLAXIS
  2. LORAZEPAM [Concomitant]
     Indication: ANXIETY
     Dosage: 2-3 TIMES DAILY, PRN
  3. BENADRYL [Concomitant]
     Indication: SLEEP DISORDER
  4. CITALOPRAM [Concomitant]
     Indication: DEPRESSION
  5. NAPROXEN (ALEVE) [Concomitant]
     Indication: MIGRAINE
  6. EXCEDRIN [Concomitant]
     Indication: MIGRAINE
  7. HUMIRA [Suspect]
     Indication: PSORIASIS
     Dates: start: 20110118

REACTIONS (1)
  - INJECTION SITE HAEMATOMA [None]
